FAERS Safety Report 4591006-0 (Version None)
Quarter: 2005Q1

REPORT INFORMATION
  Report Type: 
  Country: None (occurrence: None)
  Receive Date: 20050222
  Receipt Date: 20050222
  Transmission Date: 20050727
  Serious: Yes (Hospitalization)
  Sender: FDA-Public Use
  Company Number: None

PATIENT
  Age: 32 Year
  Sex: Male
  Weight: 79.3795 kg

DRUGS (1)
  1. MOTRIN [Suspect]
     Indication: PAIN
     Dosage: 800MG   3XDAY
     Dates: start: 19880208, end: 19580905

REACTIONS (1)
  - ULCER [None]
